FAERS Safety Report 5355459-2 (Version None)
Quarter: 2007Q2

REPORT INFORMATION
  Report Type: 
  Country: None (occurrence: None)
  Receive Date: 20070530
  Receipt Date: 20061212
  Transmission Date: 20071010
  Serious: Yes (Hospitalization)
  Sender: FDA-Public Use
  Company Number: US200609002043

PATIENT
  Age: 34 Year
  Sex: Female
  Weight: 56.7 kg

DRUGS (2)
  1. ZYPREXA [Suspect]
     Dosage: SEE IMAGE
     Dates: end: 20020101
  2. ZYPREXA [Suspect]
     Dosage: SEE IMAGE
     Dates: start: 20020522, end: 20020930

REACTIONS (4)
  - DIABETES MELLITUS [None]
  - DIABETIC COMA [None]
  - METABOLIC DISORDER [None]
  - OBESITY [None]
